FAERS Safety Report 4337947-0 (Version None)
Quarter: 2004Q1

REPORT INFORMATION
  Report Type: 
  Country: None (occurrence: None)
  Receive Date: 20040329
  Receipt Date: 20040127
  Transmission Date: 20041129
  Serious: No
  Sender: FDA-Public Use
  Company Number: USA040157716

PATIENT
  Age: 5 Year
  Sex: Female
  Weight: 19 kg

DRUGS (2)
  1. STRATTERA [Suspect]
     Indication: FOETAL ALCOHOL SYNDROME
     Dosage: 25 MG/DAY
     Dates: start: 20040116
  2. ZOLOFT [Concomitant]

REACTIONS (2)
  - EARLY MORNING AWAKENING [None]
  - MYDRIASIS [None]
